FAERS Safety Report 4816486-4 (Version None)
Quarter: 2005Q4

REPORT INFORMATION
  Report Type: 
  Country: None (occurrence: None)
  Receive Date: 20051028
  Receipt Date: 20051019
  Transmission Date: 20060501
  Serious: Yes (Hospitalization, Other)
  Sender: FDA-Public Use
  Company Number: DEWYE039810OCT05

PATIENT
  Age: 34 Month
  Sex: Male

DRUGS (11)
  1. RAPAMUNE [Suspect]
     Indication: PROPHYLAXIS AGAINST TRANSPLANT REJECTION
     Dosage: 5 MG
     Dates: start: 20021212, end: 20030122
  2. RAPAMUNE (SEROLIMUS, UNSPEC) [Suspect]
     Dosage: SEE IMAGE
     Dates: start: 20030122, end: 20030616
  3. RAPAMUNE (SEROLIMUS, UNSPEC) [Suspect]
     Dosage: SEE IMAGE
     Dates: start: 20060617, end: 20031221
  4. RAPAMUNE (SEROLIMUS, UNSPEC) [Suspect]
     Dosage: SEE IMAGE
     Dates: start: 20031222
  5. CYCLOSPORINE [Concomitant]
  6. METHYLPREDNISOLONE [Concomitant]
  7. CAPTOPRIL [Concomitant]
  8. ATENOLOL [Concomitant]
  9. AMLODIPINE BESYLATE [Concomitant]
  10. COLECALCIFEROL (COLECALCIFEROL) [Concomitant]
  11. HEMOPROTECT 9FERROUS SULFATE) [Concomitant]

REACTIONS (4)
  - DIALYSIS [None]
  - PNEUMONIA [None]
  - RENAL FAILURE ACUTE [None]
  - TRANSPLANT FAILURE [None]
